FAERS Safety Report 6840271-5 (Version None)
Quarter: 2010Q3

REPORT INFORMATION
  Report Type: 
  Country: None (occurrence: None)
  Receive Date: 20100714
  Receipt Date: 20100706
  Transmission Date: 20110219
  Serious: Yes (Other)
  Sender: FDA-Public Use
  Company Number: CHPA2010US11257

PATIENT
  Age: 8 Year
  Sex: Female

DRUGS (2)
  1. PREVACID 24 HR [Suspect]
     Dosage: UNK, UNK
  2. PEPCID [Suspect]
     Dosage: UNK, UNK

REACTIONS (5)
  - DRUG DEPENDENCE [None]
  - INCORRECT DOSE ADMINISTERED [None]
  - OVERDOSE [None]
  - TREATMENT NONCOMPLIANCE [None]
  - VOMITING [None]
